FAERS Safety Report 7994260-8 (Version None)
Quarter: 2011Q4

REPORT INFORMATION
  Report Type: 
  Country: None (occurrence: None)
  Receive Date: 20111220
  Receipt Date: 20111208
  Transmission Date: 20120403
  Serious: Yes (Hospitalization)
  Sender: FDA-Public Use
  Company Number: GB-COVIDIEN/TYCO HEALTHCARE/MALLINCKRODT-T201102847

PATIENT
  Sex: Female

DRUGS (3)
  1. OPTIRAY 160 [Suspect]
     Indication: COMPUTERISED TOMOGRAM
     Dosage: 96 ML, SINGLE
     Route: 042
     Dates: start: 20111205, end: 20111205
  2. HYDROCORTISONE [Concomitant]
     Dosage: UNK
  3. PERITON [Concomitant]
     Dosage: UNK

REACTIONS (3)
  - PRURITUS [None]
  - RASH [None]
  - URTICARIA [None]
